FAERS Safety Report 7778093-3 (Version None)
Quarter: 2011Q3

REPORT INFORMATION
  Report Type: 
  Country: None (occurrence: None)
  Receive Date: 20110926
  Receipt Date: 20110913
  Transmission Date: 20111222
  Serious: Yes (Hospitalization)
  Sender: FDA-Public Use
  Company Number: CA-JNJFOC-20110906764

PATIENT
  Age: 30 Year
  Sex: Female
  Weight: 113.4 kg

DRUGS (4)
  1. CYMBALTA [Concomitant]
     Route: 065
  2. OTHER THERAPEUTIC MEDICATIONS [Concomitant]
     Indication: ULCER
     Route: 065
  3. TUCKS HEMORRHOID PADS [Suspect]
     Indication: HAEMORRHOIDS
     Dosage: 5 WIPES
     Route: 061
     Dates: start: 20110901, end: 20110911
  4. OTHER THERAPEUTIC MEDICATIONS [Concomitant]
     Route: 065

REACTIONS (3)
  - APPLICATION SITE RASH [None]
  - APPLICATION SITE SWELLING [None]
  - APPLICATION SITE EROSION [None]
